FAERS Safety Report 7233247-X (Version None)
Quarter: 2011Q1

REPORT INFORMATION
  Report Type: 
  Country: None (occurrence: None)
  Receive Date: 20110119
  Receipt Date: 20110114
  Transmission Date: 20110831
  Serious: Yes (Other)
  Sender: FDA-Public Use
  Company Number: B0691495A

PATIENT
  Age: 15 Year
  Sex: Female

DRUGS (1)
  1. RELENZA [Suspect]
     Route: 055
     Dates: start: 20090201

REACTIONS (1)
  - NEUROMYELITIS OPTICA [None]
